FAERS Safety Report 6324070-9 (Version None)
Quarter: 2009Q3

REPORT INFORMATION
  Report Type: 
  Country: None (occurrence: None)
  Receive Date: 20090824
  Receipt Date: 20090420
  Transmission Date: 20100115
  Serious: No
  Sender: FDA-Public Use
  Company Number: US-ABBOTT-09P-163-0569297-00

PATIENT
  Sex: Male
  Weight: 111.23 kg

DRUGS (8)
  1. NIASPAN [Suspect]
     Indication: HIGH DENSITY LIPOPROTEIN DECREASED
     Route: 048
     Dates: start: 20060101, end: 20060101
  2. NIASPAN [Suspect]
     Route: 048
     Dates: start: 20090417
  3. FLOMAX [Concomitant]
     Indication: DRUG USE FOR UNKNOWN INDICATION
  4. PRAVACHOL [Concomitant]
     Indication: DRUG USE FOR UNKNOWN INDICATION
  5. GOTRAZENE [Concomitant]
     Indication: GOUT
  6. ALLOPURINOL [Concomitant]
     Indication: GOUT
  7. PROSCAR [Concomitant]
     Indication: PROSTATOMEGALY
  8. ALEVE [Concomitant]
     Indication: DRUG USE FOR UNKNOWN INDICATION

REACTIONS (3)
  - FLUSHING [None]
  - GENERALISED ERYTHEMA [None]
  - HOT FLUSH [None]
